FAERS Safety Report 23896121 (Version 3)
Quarter: 2024Q3

REPORT INFORMATION
  Report Type: Spontaneous
  Country: US (occurrence: US)
  Receive Date: 20240524
  Receipt Date: 20240801
  Transmission Date: 20241016
  Serious: No
  Sender: PFIZER
  Company Number: US-PFIZER INC-PV202400067371

PATIENT
  Age: 59 Year
  Sex: Female

DRUGS (3)
  1. IBRANCE [Suspect]
     Active Substance: PALBOCICLIB
     Dosage: 125 MG
  2. ANASTROZOLE [Concomitant]
     Active Substance: ANASTROZOLE
     Dosage: UNK (NO LONGER ON ANASTROZOLE)
  3. ORSERDU [Concomitant]
     Active Substance: ELACESTRANT
     Dosage: UNK

REACTIONS (6)
  - Abdominal discomfort [Unknown]
  - Dysphagia [Unknown]
  - Sensation of foreign body [Unknown]
  - Nausea [Not Recovered/Not Resolved]
  - Off label use [Unknown]
  - Product use issue [Unknown]
